FAERS Safety Report 13088552 (Version 2)
Quarter: 2017Q1

REPORT INFORMATION
  Report Type: Spontaneous
  Country: KR (occurrence: KR)
  Receive Date: 20170105
  Receipt Date: 20170118
  Transmission Date: 20170428
  Serious: Yes (Other)
  Sender: FDA-Public Use
  Company Number: PHHY2017KR000864

PATIENT
  Age: 73 Year
  Sex: Male

DRUGS (4)
  1. WARFARIN [Interacting]
     Active Substance: WARFARIN
     Dosage: UNK, REDUCED DOSE
     Route: 048
     Dates: start: 20161227, end: 20170102
  2. LESCOL XL [Suspect]
     Active Substance: FLUVASTATIN SODIUM
     Indication: HYPERLIPIDAEMIA
     Dosage: 80 MG, QD
     Route: 048
     Dates: start: 201612
  3. WARFARIN [Interacting]
     Active Substance: WARFARIN
     Dosage: SUNDAY 3 MG AND OTHER DAY 2 MG, QD
     Route: 048
     Dates: start: 20170103
  4. WARFARIN [Interacting]
     Active Substance: WARFARIN
     Indication: PRODUCT USED FOR UNKNOWN INDICATION
     Dosage: SUNDAY AND WEDNESDAY 4 MG AND OTHER DAY 3 MG, QD
     Route: 048
     Dates: end: 20161226

REACTIONS (1)
  - International normalised ratio increased [Not Recovered/Not Resolved]

NARRATIVE: CASE EVENT DATE: 20161227
